FAERS Safety Report 6013548-3 (Version None)
Quarter: 2008Q4

REPORT INFORMATION
  Report Type: 
  Country: None (occurrence: None)
  Receive Date: 20081219
  Receipt Date: 20081215
  Transmission Date: 20090506
  Serious: Yes (Other)
  Sender: FDA-Public Use
  Company Number: PHHY2008IT32339

PATIENT

DRUGS (1)
  1. VOLTADVANCE [Suspect]
     Indication: ARTHRALGIA
     Dosage: 25 MG, UNK
     Route: 048
     Dates: start: 20081121, end: 20081121

REACTIONS (2)
  - DERMATITIS BULLOUS [None]
  - DYSPEPSIA [None]
